FAERS Safety Report 8067556-1 (Version None)
Quarter: 2012Q1

REPORT INFORMATION
  Report Type: 
  Country: None (occurrence: None)
  Receive Date: 20120124
  Receipt Date: 20120123
  Transmission Date: 20120608
  Serious: Yes (Other)
  Sender: FDA-Public Use
  Company Number: US-AMGEN-USASP2012004628

PATIENT
  Age: 70 Year
  Sex: Male

DRUGS (4)
  1. NPLATE [Suspect]
     Indication: THROMBOCYTOPENIA
     Dosage: 200 MUG/KG, QWK
     Dates: start: 20110901
  2. FLOMAX [Concomitant]
  3. PRADAXA [Concomitant]
  4. LISINOPRIL [Concomitant]

REACTIONS (2)
  - THERAPEUTIC RESPONSE DELAYED [None]
  - C-REACTIVE PROTEIN INCREASED [None]
